FAERS Safety Report 5661493-5 (Version None)
Quarter: 2008Q1

REPORT INFORMATION
  Report Type: 
  Country: None (occurrence: None)
  Receive Date: 20080312
  Receipt Date: 20080307
  Transmission Date: 20080703
  Serious: Yes (Death, Other)
  Sender: FDA-Public Use
  Company Number: PHBS2008DK03135

PATIENT
  Age: 44 Year
  Sex: Female

DRUGS (1)
  1. ZOMETA [Suspect]
     Indication: METASTASES TO BONE
     Dosage: 4 MG EVERY THIRD WEEK
     Route: 042
     Dates: start: 20040301, end: 20050126

REACTIONS (2)
  - LUNG NEOPLASM MALIGNANT [None]
  - OSTEONECROSIS [None]
